FAERS Safety Report 9513475 (Version 1)
Quarter: 2013Q3

REPORT INFORMATION
  Report Type: Spontaneous
  Country: US (occurrence: None)
  Receive Date: 20130910
  Receipt Date: 20130910
  Transmission Date: 20140515
  Serious: No
  Sender: FDA-Public Use
  Company Number: US-TARO-2013P1004451

PATIENT
  Sex: Male

DRUGS (2)
  1. WARFARIN SODIUM TABLETS USP 10MG [Suspect]
     Dates: start: 20121226
  2. DIVALPROEX [Concomitant]

REACTIONS (1)
  - International normalised ratio decreased [Unknown]
